FAERS Safety Report 4544346-5 (Version None)
Quarter: 2005Q1

REPORT INFORMATION
  Report Type: 
  Country: None (occurrence: None)
  Receive Date: 20050104
  Receipt Date: 20041221
  Transmission Date: 20050727
  Serious: Yes (Other)
  Sender: FDA-Public Use
  Company Number: DE-MERCK-0412DEU00208

PATIENT
  Age: 62 Year
  Sex: Female

DRUGS (1)
  1. PRIMAXIN [Suspect]
     Route: 042

REACTIONS (1)
  - VASCULITIS NECROTISING [None]
